FAERS Safety Report 10052761 (Version 1)
Quarter: 2014Q1

REPORT INFORMATION
  Report Type: Spontaneous
  Country: PT (occurrence: None)
  Receive Date: 20140331
  Receipt Date: 20140331
  Transmission Date: 20141002
  Serious: Yes (Hospitalization)
  Sender: FDA-Public Use
  Company Number: IMP_07542_2014

PATIENT
  Age: 85 Year
  Sex: Female

DRUGS (3)
  1. FENOFIBRATE [Suspect]
     Indication: PRODUCT USED FOR UNKNOWN INDICATION
     Dosage: 6 WEEKS UNTIL NOT CONTINUING?
  2. ALLOPURINOL [Suspect]
     Indication: PRODUCT USED FOR UNKNOWN INDICATION
     Dosage: 6 WEEKS UNTIL NOT CONTINUING?
  3. NITROFURANTOIN [Suspect]
     Indication: PRODUCT USED FOR UNKNOWN INDICATION
     Dosage: 6 WEEKS UNTIL NOT CONTINUING?

REACTIONS (3)
  - Renal failure acute [None]
  - Drug reaction with eosinophilia and systemic symptoms [None]
  - Bronchial hyperreactivity [None]
